FAERS Safety Report 24400972 (Version 1)
Quarter: 2024Q4

REPORT INFORMATION
  Report Type: Spontaneous
  Country: US (occurrence: US)
  Receive Date: 20241006
  Receipt Date: 20241006
  Transmission Date: 20250114
  Serious: Yes (Other)
  Sender: DENTSPLY
  Company Number: US-DENTSPLY-2024SCDP000280

PATIENT
  Age: 75 Year
  Sex: Female

DRUGS (1)
  1. LIDOCAINE [Suspect]
     Active Substance: LIDOCAINE
     Indication: Product used for unknown indication
     Dosage: UNK DOSE OF VISCOUS LIDOCAINE

REACTIONS (1)
  - Pneumonitis aspiration [Unknown]
